FAERS Safety Report 5023545-2 (Version None)
Quarter: 2006Q2

REPORT INFORMATION
  Report Type: 
  Country: None (occurrence: None)
  Receive Date: 20060612
  Receipt Date: 20060209
  Transmission Date: 20061013
  Serious: Yes (Hospitalization)
  Sender: FDA-Public Use
  Company Number: PHEH2006US01919

PATIENT
  Age: 67 Year
  Sex: Female

DRUGS (4)
  1. ZELNORM [Suspect]
     Indication: CONSTIPATION
     Dosage: 6 MG, QD
     Route: 048
     Dates: start: 20040701, end: 20041001
  2. ADVIL [Suspect]
     Indication: HEADACHE
  3. EXCEDRIN (MIGRAINE) [Suspect]
     Indication: HEADACHE
  4. ALEVE (CAPLET) [Suspect]

REACTIONS (6)
  - CHOLECYSTECTOMY [None]
  - DYSPNOEA [None]
  - GALLBLADDER DISORDER [None]
  - GASTRIC HAEMORRHAGE [None]
  - GASTRITIS HAEMORRHAGIC [None]
  - OESOPHAGEAL ULCER HAEMORRHAGE [None]
